FAERS Safety Report 24688690 (Version 1)
Quarter: 2024Q4

REPORT INFORMATION
  Report Type: Spontaneous
  Country: DE (occurrence: DE)
  Receive Date: 20241203
  Receipt Date: 20241203
  Transmission Date: 20250115
  Serious: Yes (Hospitalization, Other)
  Sender: NOVO NORDISK
  Company Number: None

PATIENT
  Age: 50 Year
  Sex: Female
  Weight: 99 kg

DRUGS (5)
  1. DECODERM [FLUPREDNIDENE ACETATE] [Concomitant]
     Indication: Urticaria
     Dosage: 1 DF, QD (1-0-1 (TEMPORARY ADMINISTRATION)
     Dates: start: 202402
  2. DIPYRONE [Concomitant]
     Active Substance: DIPYRONE
     Indication: Urticaria
     Dosage: 1000 MG (2-2-2-2 TEMPORARY INTAKE)
     Dates: start: 202402
  3. INNOHEP [Concomitant]
     Active Substance: TINZAPARIN SODIUM
     Indication: Coagulopathy
  4. INNOHEP [Concomitant]
     Active Substance: TINZAPARIN SODIUM
     Indication: Thrombosis prophylaxis
     Dosage: NECESSARY ONCE DAILY
  5. WEGOVY [Suspect]
     Active Substance: SEMAGLUTIDE
     Indication: Obesity
     Dosage: 1 DF, QW (1 ML)
     Route: 058
     Dates: start: 20240715, end: 20241115

REACTIONS (4)
  - Headache [Unknown]
  - Pupillary reflex impaired [Unknown]
  - Blindness [Not Recovered/Not Resolved]
  - Optic ischaemic neuropathy [Not Recovered/Not Resolved]

NARRATIVE: CASE EVENT DATE: 20241101
